FAERS Safety Report 6027260-8 (Version None)
Quarter: 2009Q1

REPORT INFORMATION
  Report Type: 
  Country: None (occurrence: None)
  Receive Date: 20090105
  Receipt Date: 20081224
  Transmission Date: 20090719
  Serious: Yes (Other)
  Sender: FDA-Public Use
  Company Number: US-ELI_LILLY_AND_COMPANY-US200812005701

PATIENT
  Sex: Male

DRUGS (3)
  1. HUMALOG [Suspect]
  2. HUMAN INSULIN (RDNA ORIGIN) [Suspect]
  3. NOVOLOG [Concomitant]

REACTIONS (4)
  - ANGIOPLASTY [None]
  - ARTERIAL DISORDER [None]
  - CHEST DISCOMFORT [None]
  - DYSPNOEA [None]
